FAERS Safety Report 7137602-8 (Version None)
Quarter: 2010Q4

REPORT INFORMATION
  Report Type: 
  Country: None (occurrence: None)
  Receive Date: 20101102
  Receipt Date: 20100713
  Transmission Date: 20110411
  Serious: Yes (Hospitalization, Other)
  Sender: FDA-Public Use
  Company Number: 241229USA

PATIENT
  Sex: Female

DRUGS (1)
  1. LOSARTAN POTASSIUM [Suspect]
     Indication: HYPERTENSION
     Dosage: 50 MG/12.5 (1 IN 1 D),ORAL
     Route: 048
     Dates: start: 20100401

REACTIONS (6)
  - BLOOD PRESSURE DIASTOLIC INCREASED [None]
  - CHEST DISCOMFORT [None]
  - DIZZINESS [None]
  - HYPOKALAEMIA [None]
  - MALAISE [None]
  - VERTIGO [None]
